FAERS Safety Report 11491319 (Version 2)
Quarter: 2015Q3

REPORT INFORMATION
  Report Type: Spontaneous
  Country: DK (occurrence: DK)
  Receive Date: 20150910
  Receipt Date: 20150915
  Transmission Date: 20151125
  Serious: Yes (Hospitalization, Other)
  Sender: FDA-Public Use
  Company Number: DK-JNJFOC-20150903015

PATIENT
  Age: 33 Year
  Sex: Male

DRUGS (2)
  1. REMICADE [Suspect]
     Active Substance: INFLIXIMAB
     Indication: ANKYLOSING SPONDYLITIS
     Route: 042
     Dates: start: 20010816, end: 201310
  2. METHOTREXATE [Concomitant]
     Active Substance: METHOTREXATE
     Indication: ANKYLOSING SPONDYLITIS
     Route: 065
     Dates: start: 2002

REACTIONS (5)
  - Cancer surgery [Recovered/Resolved]
  - Testis cancer [Unknown]
  - Drug effect decreased [Unknown]
  - Spinal fracture [Unknown]
  - Ankylosing spondylitis [Unknown]

NARRATIVE: CASE EVENT DATE: 2013
